FAERS Safety Report 5956994-6 (Version None)
Quarter: 2008Q4

REPORT INFORMATION
  Report Type: 
  Country: None (occurrence: None)
  Receive Date: 20081118
  Receipt Date: 20080801
  Transmission Date: 20090506
  Serious: No
  Sender: FDA-Public Use
  Company Number: A0740726A

PATIENT
  Age: 77 Year
  Sex: Male

DRUGS (5)
  1. COREG CR [Suspect]
     Dosage: 20MG PER DAY
     Route: 048
     Dates: start: 20070901
  2. AMIODARONE HCL [Concomitant]
  3. ASPIRIN [Concomitant]
  4. LASIX [Concomitant]
  5. DIGOXIN [Concomitant]

REACTIONS (2)
  - DYSPNOEA [None]
  - GAIT DISTURBANCE [None]
